FAERS Safety Report 16894064 (Version 2)
Quarter: 2019Q4

REPORT INFORMATION
  Report Type: Spontaneous
  Country: JP (occurrence: JP)
  Receive Date: 20191008
  Receipt Date: 20191022
  Transmission Date: 20200122
  Serious: Yes (Hospitalization, Other)
  Sender: FDA-Public Use
  Company Number: JP-SAKK-2019SA272762AA

PATIENT
  Age: 81 Year
  Sex: Male

DRUGS (5)
  1. DUPIXENT [Suspect]
     Active Substance: DUPILUMAB
     Indication: ASTHMA
     Dosage: 300 MG, QOW
     Route: 058
     Dates: start: 20190522, end: 20190822
  2. MONTELUKAST [MONTELUKAST SODIUM] [Concomitant]
     Active Substance: MONTELUKAST SODIUM
     Indication: ASTHMA
     Dosage: 1 DF, QD
     Route: 048
  3. DUPIXENT [Suspect]
     Active Substance: DUPILUMAB
     Dosage: UNK, QOW
     Route: 058
     Dates: start: 20190920
  4. CLARITH [Concomitant]
     Active Substance: CLARITHROMYCIN
     Indication: PNEUMONIA
     Dosage: 1 DF, QD
     Route: 048
  5. MUCOSOLVAN L [Concomitant]
     Active Substance: AMBROXOL HYDROCHLORIDE
     Indication: PRODUCTIVE COUGH
     Dosage: 1 DF, QD
     Route: 048

REACTIONS (5)
  - Nasopharyngitis [Recovered/Resolved]
  - Pneumonia [Recovered/Resolved]
  - Feeling abnormal [Recovered/Resolved]
  - Asthma [Recovered/Resolved]
  - Vomiting [Recovered/Resolved]

NARRATIVE: CASE EVENT DATE: 201908
